FAERS Safety Report 20872477 (Version 1)
Quarter: 2022Q2

REPORT INFORMATION
  Report Type: Spontaneous
  Country: US (occurrence: US)
  Receive Date: 20220525
  Receipt Date: 20220525
  Transmission Date: 20220721
  Serious: Yes (Other)
  Sender: FDA-Public Use
  Company Number: US-BRISTOL-MYERS SQUIBB COMPANY-2022-041695

PATIENT
  Age: 65 Year
  Sex: Female
  Weight: 154.2 kg

DRUGS (28)
  1. APIXABAN [Suspect]
     Active Substance: APIXABAN
     Dosage: UNK
     Route: 065
  2. POTASSIUM CHLORIDE [Suspect]
     Active Substance: POTASSIUM CHLORIDE
     Indication: Blood potassium abnormal
     Dosage: UNK
     Route: 065
  3. KORLYM [Suspect]
     Active Substance: MIFEPRISTONE
     Indication: Cushing^s syndrome
     Dosage: 300 MG, 1X/DAY
     Route: 048
     Dates: start: 20211210, end: 20220325
  4. KORLYM [Suspect]
     Active Substance: MIFEPRISTONE
     Dosage: 600 MG, 1X/DAY
     Route: 048
     Dates: start: 20220326, end: 2022
  5. INSULIN NOS [Suspect]
     Active Substance: INSULIN NOS
     Indication: Diabetes mellitus
     Dosage: UNK
     Route: 065
  6. ALBUTEROL SULFATE [Concomitant]
     Active Substance: ALBUTEROL SULFATE
  7. BIOTIN [Concomitant]
     Active Substance: BIOTIN
  8. BASAGLAR [Concomitant]
     Active Substance: INSULIN GLARGINE
  9. CELECOXIB [Concomitant]
     Active Substance: CELECOXIB
  10. CETIRIZINE HYDROCHLORIDE [Concomitant]
     Active Substance: CETIRIZINE HYDROCHLORIDE
  11. CHOLESTYRAMINE [Concomitant]
     Active Substance: CHOLESTYRAMINE
  12. FIASP [Concomitant]
     Active Substance: INSULIN ASPART
  13. HYDROCODONE BITARTRATE AND ACETAMINOPHEN [Concomitant]
     Active Substance: ACETAMINOPHEN\HYDROCODONE BITARTRATE
  14. HYOSCYAMINE [Concomitant]
     Active Substance: HYOSCYAMINE
  15. JARDIANCE [Concomitant]
     Active Substance: EMPAGLIFLOZIN
  16. LEVOTHYROXINE [Concomitant]
     Active Substance: LEVOTHYROXINE
  17. LORAZEPAM [Concomitant]
     Active Substance: LORAZEPAM
  18. MAGNESIUM [Concomitant]
     Active Substance: MAGNESIUM
  19. METFORMIN [Concomitant]
     Active Substance: METFORMIN HYDROCHLORIDE
  20. MONTELUKAST [Concomitant]
     Active Substance: MONTELUKAST SODIUM
  21. OMEPRAZOLE [Concomitant]
     Active Substance: OMEPRAZOLE
  22. KCL [Concomitant]
     Active Substance: POTASSIUM CHLORIDE
  23. PREVIDENT VARNISH [Concomitant]
     Dosage: SOLUTION (EXCEPT SYRUP)
     Route: 065
  24. TORSEMIDE [Concomitant]
     Active Substance: TORSEMIDE
  25. TRULICITY [Concomitant]
     Active Substance: DULAGLUTIDE
  26. VALSARTAN [Concomitant]
     Active Substance: VALSARTAN
  27. VENLAFAXINE [Concomitant]
     Active Substance: VENLAFAXINE HYDROCHLORIDE
  28. DICLOFENAC POTASSIUM [Concomitant]
     Active Substance: DICLOFENAC POTASSIUM
     Route: 065

REACTIONS (12)
  - Renal impairment [Unknown]
  - Restlessness [Not Recovered/Not Resolved]
  - Feeling jittery [Not Recovered/Not Resolved]
  - Blood potassium increased [Unknown]
  - Fall [Recovering/Resolving]
  - Peripheral swelling [Not Recovered/Not Resolved]
  - Pain in extremity [Unknown]
  - Arthralgia [Unknown]
  - Nausea [Recovering/Resolving]
  - Pain [Recovering/Resolving]
  - Fatigue [Not Recovered/Not Resolved]
  - Blood glucose decreased [Unknown]

NARRATIVE: CASE EVENT DATE: 20211210
